FAERS Safety Report 24213929 (Version 1)
Quarter: 2024Q3

REPORT INFORMATION
  Report Type: Spontaneous
  Country: FR (occurrence: FR)
  Receive Date: 20240815
  Receipt Date: 20240815
  Transmission Date: 20241017
  Serious: Yes (Hospitalization)
  Sender: ROCHE
  Company Number: None

PATIENT
  Age: 55 Year
  Sex: Male
  Weight: 84.3 kg

DRUGS (22)
  1. ALECENSA [Suspect]
     Active Substance: ALECTINIB HYDROCHLORIDE
     Indication: Lung adenocarcinoma stage IV
     Route: 048
     Dates: start: 20231214
  2. SOLUPRED 20 mg, [Concomitant]
     Indication: Intracranial pressure increased
     Route: 048
     Dates: start: 20240117, end: 20240123
  3. SOLUPRED 20 mg, [Concomitant]
     Route: 048
     Dates: start: 20240106, end: 20240109
  4. SOLUPRED 20 mg, [Concomitant]
     Route: 048
     Dates: start: 20240110, end: 20240116
  5. SOLUPRED 20 mg, [Concomitant]
     Route: 048
     Dates: start: 20240103, end: 20240105
  6. SOLUPRED 20 mg, [Concomitant]
     Route: 048
     Dates: start: 20231223, end: 20240102
  7. NORMACOL LAVEMENT ADULTES [Concomitant]
     Route: 054
     Dates: start: 20231217, end: 20231222
  8. URAPIDIL [Concomitant]
     Active Substance: URAPIDIL
     Indication: Hypertension
     Route: 048
     Dates: start: 20231215, end: 20240102
  9. LEVETIRACETAM [Concomitant]
     Active Substance: LEVETIRACETAM
     Indication: Metastases to central nervous system
     Route: 048
     Dates: start: 20231214
  10. PREDNISONE [Concomitant]
     Active Substance: PREDNISONE
     Route: 048
     Dates: start: 20240518, end: 20240524
  11. PREDNISONE [Concomitant]
     Active Substance: PREDNISONE
     Route: 048
     Dates: start: 20240123, end: 20240517
  12. SKENAN [Concomitant]
     Active Substance: MORPHINE SULFATE
     Route: 048
     Dates: start: 2023
  13. MORPHINE SULFATE [Concomitant]
     Active Substance: MORPHINE SULFATE
     Route: 048
     Dates: start: 2023
  14. PREGABALIN [Concomitant]
     Active Substance: PREGABALIN
     Route: 048
     Dates: start: 20231209
  15. VALSARTAN [Concomitant]
     Active Substance: VALSARTAN
     Indication: Hypertension
     Route: 048
  16. PANTOPRAZOLE [Concomitant]
     Active Substance: PANTOPRAZOLE
     Indication: Product used for unknown indication
     Route: 048
     Dates: start: 20231209
  17. INSULINE ASPARTE SANOFI [Concomitant]
     Route: 058
     Dates: start: 20231211
  18. AMLODIPINE [Concomitant]
     Active Substance: AMLODIPINE BESYLATE
     Indication: Hypertension
     Route: 048
  19. SODIUM BICARBONATE [Concomitant]
     Active Substance: SODIUM BICARBONATE
     Indication: Dry mouth
     Route: 002
     Dates: start: 20231212, end: 20231222
  20. POTASSIUM CHLORIDE [Concomitant]
     Active Substance: POTASSIUM CHLORIDE
     Route: 048
     Dates: start: 20231208
  21. METOCLOPRAMIDE [Concomitant]
     Active Substance: METOCLOPRAMIDE
     Indication: Prophylaxis of nausea and vomiting
     Route: 048
     Dates: start: 20231208, end: 20231224
  22. ONDANSETRON [Concomitant]
     Active Substance: ONDANSETRON
     Indication: Prophylaxis of nausea and vomiting
     Route: 048
     Dates: start: 20231213, end: 20231222

REACTIONS (2)
  - Mental disorder [Recovered/Resolved]
  - Confusional state [Recovering/Resolving]

NARRATIVE: CASE EVENT DATE: 20231219
